FAERS Safety Report 9996465 (Version 1)
Quarter: 2014Q1

REPORT INFORMATION
  Report Type: Spontaneous
  Country: US (occurrence: None)
  Receive Date: 20140310
  Receipt Date: 20140310
  Transmission Date: 20141002
  Serious: Yes (Other)
  Sender: FDA-Public Use
  Company Number: None

PATIENT
  Age: 70 Year
  Sex: Female

DRUGS (1)
  1. NEXIUM [Suspect]
     Dates: start: 20040302, end: 20140219

REACTIONS (4)
  - Hypoaesthesia [None]
  - Paraesthesia [None]
  - Arthralgia [None]
  - Neuralgia [None]
